FAERS Safety Report 7804390-9 (Version None)
Quarter: 2011Q4

REPORT INFORMATION
  Report Type: 
  Country: None (occurrence: None)
  Receive Date: 20111010
  Receipt Date: 20110927
  Transmission Date: 20120403
  Serious: Yes (Hospitalization)
  Sender: FDA-Public Use
  Company Number: US-ELI_LILLY_AND_COMPANY-US201108002558

PATIENT
  Sex: Female
  Weight: 55.329 kg

DRUGS (6)
  1. EVISTA [Suspect]
     Indication: OSTEOPOROSIS PROPHYLAXIS
     Dosage: 60 MG, QD
     Dates: start: 19960101
  2. EVISTA [Suspect]
     Dosage: 60 MG, QD
  3. VITAMIN D [Concomitant]
  4. FORTEO [Suspect]
     Dosage: 20 UG, QD
  5. CITRACAL-D [Concomitant]
     Dosage: 2 DF, QD
  6. FORTEO [Suspect]
     Indication: OSTEOPOROSIS
     Dosage: 20 UG, QD
     Dates: start: 20110802

REACTIONS (12)
  - OSTEOPOROSIS [None]
  - POST-TRAUMATIC STRESS DISORDER [None]
  - CONFUSIONAL STATE [None]
  - SPINAL FRACTURE [None]
  - DECREASED APPETITE [None]
  - BACK PAIN [None]
  - NAUSEA [None]
  - BONE PAIN [None]
  - FALL [None]
  - MOBILITY DECREASED [None]
  - ROAD TRAFFIC ACCIDENT [None]
  - PAIN [None]
